FAERS Safety Report 14225195 (Version 1)
Quarter: 2017Q4

REPORT INFORMATION
  Report Type: Spontaneous
  Country: US (occurrence: None)
  Receive Date: 20171122
  Receipt Date: 20171122
  Transmission Date: 20180321
  Serious: Yes (Hospitalization)
  Sender: FDA-Public Use
  Company Number: None

PATIENT
  Age: 51 Year
  Sex: Female

DRUGS (1)
  1. CAPECITABINE 500 MG MYLAN [Suspect]
     Active Substance: CAPECITABINE
     Indication: COLON CANCER
     Dosage: 2 TABLETS BID ORAL
     Route: 048

REACTIONS (1)
  - Neoplasm [None]

NARRATIVE: CASE EVENT DATE: 20171119
